FAERS Safety Report 5754435-5 (Version None)
Quarter: 2008Q2

REPORT INFORMATION
  Report Type: 
  Country: None (occurrence: None)
  Receive Date: 20080530
  Receipt Date: 20080520
  Transmission Date: 20081010
  Serious: No
  Sender: FDA-Public Use
  Company Number: US-PFIZER INC-2008032616

PATIENT
  Sex: Male

DRUGS (3)
  1. NEURONTIN [Suspect]
     Dosage: DAILY DOSE:3600MG
  2. OXYCODONE HCL [Concomitant]
  3. ELAVIL [Concomitant]

REACTIONS (1)
  - NO ADVERSE EVENT [None]
